FAERS Safety Report 25979173 (Version 1)
Quarter: 2025Q4

REPORT INFORMATION
  Report Type: Spontaneous
  Country: US (occurrence: None)
  Receive Date: 20251030
  Receipt Date: 20251030
  Transmission Date: 20260117
  Serious: Yes (Death)
  Sender: FDA-CTU
  Company Number: None

PATIENT
  Age: 67 Year
  Sex: Male

DRUGS (1)
  1. ALCOHOL (ISOPROPYL ALCOHOL) [Suspect]
     Active Substance: ISOPROPYL ALCOHOL
     Dates: start: 20250730, end: 20250730

REACTIONS (4)
  - Respiratory depression [None]
  - Accidental overdose [None]
  - Accidental exposure to product [None]
  - Alcohol poisoning [None]

NARRATIVE: CASE EVENT DATE: 20250730
